FAERS Safety Report 5089872-8 (Version None)
Quarter: 2006Q3

REPORT INFORMATION
  Report Type: 
  Country: None (occurrence: None)
  Receive Date: 20060727
  Receipt Date: 20060626
  Transmission Date: 20061208
  Serious: Yes (Other)
  Sender: FDA-Public Use
  Company Number: 2006066179

PATIENT
  Age: 47 Year
  Sex: Female
  Weight: 68.0396 kg

DRUGS (3)
  1. LYRICA [Suspect]
     Indication: ILL-DEFINED DISORDER
     Dosage: 225 MG (75 MG,3 IN 1 D)
     Dates: start: 20060401, end: 20060601
  2. HYDROCODONE (HYDROCODONE) [Concomitant]
  3. FLEXERIL [Concomitant]

REACTIONS (3)
  - BLISTER [None]
  - DRY SKIN [None]
  - SKIN EXFOLIATION [None]
